FAERS Safety Report 24542306 (Version 2)
Quarter: 2024Q4

REPORT INFORMATION
  Report Type: Report from Study
  Country: CH (occurrence: CH)
  Receive Date: 20241023
  Receipt Date: 20241026
  Transmission Date: 20250115
  Serious: Yes (Death, Hospitalization, Other)
  Sender: ABBVIE
  Company Number: CH-ABBVIE-5973505

PATIENT
  Sex: Female
  Weight: 67 kg

DRUGS (17)
  1. CARBIDOPA\LEVODOPA [Suspect]
     Active Substance: CARBIDOPA\LEVODOPA
     Indication: Parkinson^s disease
     Dosage: 24H THERAPY?LAST ADMIN DATE WAS 2024
     Route: 050
     Dates: start: 20240410
  2. CARBIDOPA\LEVODOPA [Suspect]
     Active Substance: CARBIDOPA\LEVODOPA
     Dosage: MD: 7.5 ML, CRD: 4.0 ML/H, ED: 1.3 ML, CRN: 1.0 ML/H
     Route: 050
     Dates: start: 20240919, end: 20241019
  3. APIXABAN [Concomitant]
     Active Substance: APIXABAN
     Indication: Atrial fibrillation
     Dosage: FREQUENCY TEXT: 1X/12H
     Route: 048
     Dates: start: 20240924, end: 20241019
  4. SODIUM PICOSULFATE [Concomitant]
     Active Substance: SODIUM PICOSULFATE
     Indication: Constipation
     Dosage: FREQUENCY TEXT: 1X/24H
     Route: 048
     Dates: start: 20240926, end: 20241019
  5. MIDODRINE [Concomitant]
     Active Substance: MIDODRINE
     Indication: Orthostatic hypotension
     Dosage: FREQUENCY TEXT: 2X/DAY
     Route: 048
     Dates: start: 20241014, end: 20241019
  6. QUETIAPINE [Concomitant]
     Active Substance: QUETIAPINE
     Indication: Hallucination
     Dosage: FREQUENCY TEXT: 1X/DAY
     Route: 048
     Dates: start: 20240924, end: 20241019
  7. MELATONIN [Concomitant]
     Active Substance: MELATONIN
     Indication: Rapid eye movement sleep behaviour disorder
     Dosage: FREQUENCY TEXT: 1X/24H
     Route: 048
     Dates: start: 20240924, end: 20241019
  8. CALCIUM\CHOLECALCIFEROL [Concomitant]
     Active Substance: CALCIUM\CHOLECALCIFEROL
     Indication: Osteoporotic fracture
     Dosage: 1000 MG/800 IU, FREQUENCY TEXT: 1X/24H
     Route: 048
     Dates: start: 20240926, end: 20241019
  9. SERTRALINE [Concomitant]
     Active Substance: SERTRALINE HYDROCHLORIDE
     Indication: Persistent depressive disorder
     Dosage: FREQUENCY TEXT: ONCE DAILY
     Route: 048
     Dates: start: 20240924, end: 20241019
  10. FIGURE [Concomitant]
     Indication: Constipation
     Dosage: FREQUENCY TEXT: 1X/24H
     Route: 048
     Dates: start: 20241010, end: 20241019
  11. PREDNISOLONE [Concomitant]
     Active Substance: PREDNISOLONE
     Indication: Haemorrhoids
     Dosage: FREQUENCY TEXT: 4X/DAY IN RESERVE (3 TABLETS IN 3 DAYS), FREQUENCY TEXT: 2X/DAY
     Route: 054
     Dates: start: 20240925, end: 20241019
  12. RIVASTIGMINE [Concomitant]
     Active Substance: RIVASTIGMINE
     Indication: Cognitive disorder
     Dosage: FREQUENCY TEXT: 2X/DAY
     Route: 048
     Dates: start: 20240924, end: 20241019
  13. BISOPROLOL [Concomitant]
     Active Substance: BISOPROLOL\BISOPROLOL FUMARATE
     Indication: Hypertension
     Dosage: FREQUENCY TEXT: 1X/24H
     Route: 048
     Dates: start: 20240924, end: 20241019
  14. ALBUTEROL\IPRATROPIUM [Concomitant]
     Active Substance: ALBUTEROL\IPRATROPIUM
     Indication: Asthma
     Dosage: FREQUENCY TEXT: 4X/DAY
     Dates: start: 20240926, end: 20241019
  15. SORBITOL [Concomitant]
     Active Substance: SORBITOL
     Indication: Constipation
     Dosage: FREQUENCY TEXT: 1X/24H
     Route: 048
     Dates: start: 20241010, end: 20241019
  16. DIBUCAINE [Concomitant]
     Active Substance: DIBUCAINE
     Indication: Haemorrhoids
     Dosage: FREQUENCY TEXT: 2X/DAY
     Route: 054
     Dates: start: 20240925, end: 20241019
  17. ALPRAZOLAM [Concomitant]
     Active Substance: ALPRAZOLAM
     Indication: Product used for unknown indication

REACTIONS (27)
  - Respiratory arrest [Fatal]
  - Bradykinesia [Not Recovered/Not Resolved]
  - Autonomic nervous system imbalance [Not Recovered/Not Resolved]
  - Hallucination [Unknown]
  - Hypercholesterolaemia [Unknown]
  - Persistent depressive disorder [Not Recovered/Not Resolved]
  - Balance disorder [Unknown]
  - Altered state of consciousness [Fatal]
  - Asthma [Unknown]
  - Osteoporotic fracture [Unknown]
  - Cardiac arrest [Recovered/Resolved]
  - Akinesia [Unknown]
  - Pyelonephritis [Unknown]
  - Dysphagia [Not Recovered/Not Resolved]
  - Dyskinesia [Not Recovered/Not Resolved]
  - Freezing phenomenon [Unknown]
  - Escherichia urinary tract infection [Unknown]
  - Cardiac failure [Unknown]
  - Pyrexia [Unknown]
  - General physical health deterioration [Not Recovered/Not Resolved]
  - Chronic kidney disease [Unknown]
  - Pallor [Not Recovered/Not Resolved]
  - Vomiting [Fatal]
  - Proteus infection [Unknown]
  - Aspiration [Fatal]
  - Fall [Unknown]
  - Orthostatic hypotension [Not Recovered/Not Resolved]

NARRATIVE: CASE EVENT DATE: 20240101
